FAERS Safety Report 4917741-X (Version None)
Quarter: 2006Q1

REPORT INFORMATION
  Report Type: 
  Country: None (occurrence: None)
  Receive Date: 20060221
  Receipt Date: 20060125
  Transmission Date: 20060701
  Serious: Yes (Hospitalization)
  Sender: FDA-Public Use
  Company Number: FR-BOEHRINGER INGELHEIM PHARMACEUTICALS, INC.-2006-FF-00054FF

PATIENT
  Sex: Male
  Weight: 17 kg

DRUGS (3)
  1. ATROVENT [Suspect]
     Indication: ASTHMATIC CRISIS
     Route: 055
     Dates: start: 20051109, end: 20051109
  2. BRICANYL [Concomitant]
     Indication: ASTHMATIC CRISIS
     Route: 055
     Dates: start: 20051109, end: 20051109
  3. SOLUPRED [Concomitant]
     Indication: ASTHMATIC CRISIS
     Dates: start: 20051109

REACTIONS (5)
  - ABDOMINAL PAIN [None]
  - BRADYCARDIA [None]
  - CYANOSIS [None]
  - HYPOVENTILATION [None]
  - SYNCOPE VASOVAGAL [None]
